FAERS Safety Report 7677430-8 (Version None)
Quarter: 2011Q3

REPORT INFORMATION
  Report Type: 
  Country: None (occurrence: None)
  Receive Date: 20110811
  Receipt Date: 20100915
  Transmission Date: 20111222
  Serious: No
  Sender: FDA-Public Use
  Company Number: US-BRISTOL-MYERS SQUIBB COMPANY-15288814

PATIENT

DRUGS (1)
  1. REYATAZ [Suspect]
     Dosage: INSTEAD OF 3TIMES A DAY

REACTIONS (1)
  - MEDICATION ERROR [None]
